FAERS Safety Report 9612929 (Version 2)
Quarter: 2013Q4

REPORT INFORMATION
  Report Type: Spontaneous
  Country: JP (occurrence: JP)
  Receive Date: 20131010
  Receipt Date: 20131016
  Transmission Date: 20140711
  Serious: No
  Sender: FDA-Public Use
  Company Number: JP-UCBSA-099378

PATIENT
  Age: 40 Year
  Sex: Female

DRUGS (5)
  1. E KEPPRA [Suspect]
     Dosage: 500 MG
     Route: 048
  2. RINDERON [Concomitant]
     Route: 048
  3. TEGRETOL [Concomitant]
     Dosage: 100 MG
     Route: 048
  4. TAKEPRON [Concomitant]
     Dosage: 15 MG
     Route: 048
  5. TEMODAL [Concomitant]
     Route: 048

REACTIONS (1)
  - Arthralgia [Not Recovered/Not Resolved]
